FAERS Safety Report 7939012-X (Version None)
Quarter: 2011Q4

REPORT INFORMATION
  Report Type: 
  Country: None (occurrence: None)
  Receive Date: 20111124
  Receipt Date: 20111116
  Transmission Date: 20120403
  Serious: Yes (Hospitalization)
  Sender: FDA-Public Use
  Company Number: BE-PFIZER INC-2011278473

PATIENT

DRUGS (11)
  1. ADALAT [Concomitant]
     Dosage: 30 MG, UNK
  2. PANTOPRAZOLE [Suspect]
     Indication: HELICOBACTER INFECTION
  3. DIAMICRON [Concomitant]
     Dosage: 0.25 DOSAGE FORMS
  4. TRAMADOL HCL [Concomitant]
     Dosage: 50 MG, 4X/DAY
  5. ATENOLOL [Concomitant]
     Dosage: 25 MG, UNK
  6. TRAMADOL HCL [Concomitant]
     Dosage: 200 MG, UNK
  7. CITALOPRAM [Concomitant]
     Dosage: 20 MG, UNK
  8. ACETAMINOPHEN [Concomitant]
  9. PANTOPRAZOLE [Suspect]
     Indication: GASTRITIS
     Dosage: UNK
     Route: 048
     Dates: end: 20111019
  10. SIMVASTATIN [Concomitant]
     Dosage: 40 MG, UNK
  11. GLUCOPHAGE [Concomitant]
     Dosage: 500 MG, UNK

REACTIONS (2)
  - CHEST PAIN [None]
  - ABDOMINAL PAIN [None]
